FAERS Safety Report 26157775 (Version 1)
Quarter: 2025Q4

REPORT INFORMATION
  Report Type: Spontaneous
  Country: US (occurrence: None)
  Receive Date: 20251212
  Receipt Date: 20251212
  Transmission Date: 20260117
  Serious: Yes (Other)
  Sender: FDA-CTU
  Company Number: None

PATIENT
  Age: 21 Year
  Sex: Female
  Weight: 64.35 kg

DRUGS (1)
  1. OLD SPICE ALPINE [Suspect]
     Active Substance: ALUMINUM ZIRCONIUM TETRACHLOROHYDREX GLY
     Indication: Hyperhidrosis
     Dosage: FREQUENCY : AS NEEDED TOPICAL
     Route: 061
     Dates: start: 20250807, end: 20251209

REACTIONS (5)
  - Application site rash [None]
  - Application site irritation [None]
  - Application site pruritus [None]
  - Application site exfoliation [None]
  - Application site pain [None]

NARRATIVE: CASE EVENT DATE: 20250805
